FAERS Safety Report 7660765-2 (Version None)
Quarter: 2011Q3

REPORT INFORMATION
  Report Type: 
  Country: None (occurrence: None)
  Receive Date: 20110805
  Receipt Date: 20101104
  Transmission Date: 20111222
  Serious: No
  Sender: FDA-Public Use
  Company Number: US-ABBOTT-10P-163-0683748-00

PATIENT
  Sex: Female
  Weight: 56.75 kg

DRUGS (5)
  1. ASPIRIN [Concomitant]
     Indication: PROPHYLAXIS
     Dates: start: 20100401
  2. NIASPAN [Suspect]
     Dates: start: 20100401, end: 20100401
  3. NIASPAN [Suspect]
     Indication: BLOOD CHOLESTEROL INCREASED
     Dates: start: 20100401, end: 20100401
  4. NIASPAN [Suspect]
     Dates: start: 20100401, end: 20100501
  5. SINGULAIR [Concomitant]
     Indication: HYPERSENSITIVITY

REACTIONS (3)
  - FORMICATION [None]
  - GENERALISED ERYTHEMA [None]
  - FLUSHING [None]
